FAERS Safety Report 10038898 (Version 1)
Quarter: 2014Q1

REPORT INFORMATION
  Report Type: Spontaneous
  Country: US (occurrence: None)
  Receive Date: 20140306
  Receipt Date: 20140306
  Transmission Date: 20141002
  Serious: Yes (Hospitalization)
  Sender: FDA-Public Use
  Company Number: 163-21880-13052528

PATIENT
  Age: 82 Year
  Sex: Male
  Weight: 92.53 kg

DRUGS (1)
  1. REVLIMID [Suspect]
     Indication: PLASMA CELL MYELOMA
     Dosage: 10MG, X 21 DAYS, PO TEMPORARILY INTERRUPTED
     Route: 048
     Dates: start: 20130303

REACTIONS (2)
  - Atrial fibrillation [None]
  - Cellulitis [None]
